FAERS Safety Report 24580002 (Version 1)
Quarter: 2024Q4

REPORT INFORMATION
  Report Type: Spontaneous
  Country: US (occurrence: US)
  Receive Date: 20241105
  Receipt Date: 20241105
  Transmission Date: 20250115
  Serious: Yes (Life-Threatening, Hospitalization, Other)
  Sender: SLATE RUN
  Company Number: US-SLATERUN-2024SRLIT00172

PATIENT
  Age: 27 Year
  Sex: Male

DRUGS (1)
  1. DILTIAZEM [Suspect]
     Active Substance: DILTIAZEM
     Indication: Atrial fibrillation
     Route: 040

REACTIONS (3)
  - Hyperthyroidism [Not Recovered/Not Resolved]
  - Cardiopulmonary failure [Not Recovered/Not Resolved]
  - Product use issue [Unknown]
